FAERS Safety Report 25757183 (Version 4)
Quarter: 2025Q4

REPORT INFORMATION
  Report Type: Spontaneous
  Country: US (occurrence: US)
  Receive Date: 20250903
  Receipt Date: 20251023
  Transmission Date: 20260117
  Serious: No
  Sender: PFIZER
  Company Number: US-PFIZER INC-202500170799

PATIENT
  Age: 11 Year
  Sex: Female
  Weight: 44.91 kg

DRUGS (3)
  1. GENOTROPIN [Suspect]
     Active Substance: SOMATROPIN
     Indication: Insulin-like growth factor decreased
     Dosage: 1.8 MG, INJECTION ONCE A DAY
     Dates: start: 2022
  2. GENOTROPIN [Suspect]
     Active Substance: SOMATROPIN
     Dosage: 1.2 MG, ALTERNATE DAY (ALTERNATING WITH 1.4MG) DAILY
  3. GENOTROPIN [Suspect]
     Active Substance: SOMATROPIN
     Dosage: 1.4 MG, ALTERNATE DAY (ALTERNATING WITH 1.2MG) DAILY

REACTIONS (4)
  - Device breakage [Unknown]
  - Drug dose omission by device [Unknown]
  - Off label use [Unknown]
  - Scoliosis [Unknown]

NARRATIVE: CASE EVENT DATE: 20220101
